FAERS Safety Report 7070064-8 (Version None)
Quarter: 2010Q4

REPORT INFORMATION
  Report Type: 
  Country: None (occurrence: None)
  Receive Date: 20101028
  Receipt Date: 20100929
  Transmission Date: 20110411
  Serious: No
  Sender: FDA-Public Use
  Company Number: US-WYE-H17116110

PATIENT
  Sex: Female
  Weight: 59.02 kg

DRUGS (3)
  1. PROTONIX [Suspect]
     Indication: GASTROOESOPHAGEAL REFLUX DISEASE
     Dosage: 40 MG UNSPECIFIED FREQUENCY
  2. IRON [Concomitant]
  3. HYZAAR [Concomitant]

REACTIONS (1)
  - DRUG EFFECT DECREASED [None]
